FAERS Safety Report 23507363 (Version 1)
Quarter: 2024Q1

REPORT INFORMATION
  Report Type: Spontaneous
  Country: US (occurrence: None)
  Receive Date: 20240209
  Receipt Date: 20240209
  Transmission Date: 20240410
  Serious: Yes (Hospitalization)
  Sender: FDA-Public Use
  Company Number: None

PATIENT
  Age: 75 Year
  Sex: Female

DRUGS (3)
  1. GAMMAGARD LIQUID [Suspect]
     Active Substance: HUMAN IMMUNOGLOBULIN G
     Indication: Congenital hypogammaglobulinaemia
     Dosage: OTHER STRENGTH : 30GM/300M BAXALTA;?FREQUENCY : AS DIRECTED;?
     Route: 042
     Dates: start: 201605
  2. EPINEPHRINE [Concomitant]
  3. SODIUM CHLORIDE [Concomitant]
     Active Substance: SODIUM CHLORIDE

REACTIONS (3)
  - Infection [None]
  - Respiratory tract infection [None]
  - Abdominal pain [None]

NARRATIVE: CASE EVENT DATE: 20240208
